FAERS Safety Report 9462821 (Version 1)
Quarter: 2013Q3

REPORT INFORMATION
  Report Type: Spontaneous
  Country: IT (occurrence: None)
  Receive Date: 20130814
  Receipt Date: 20130814
  Transmission Date: 20140515
  Serious: Yes (Life-Threatening)
  Sender: FDA-Public Use
  Company Number: 2013P1017303

PATIENT
  Age: 73 Year
  Sex: Male

DRUGS (3)
  1. IRINOTECAN [Suspect]
     Indication: COLORECTAL CANCER METASTATIC
     Dosage: ; IV
     Route: 042
  2. 5-FLUOROURACIL [Concomitant]
  3. FOLIC ACID [Concomitant]

REACTIONS (1)
  - Anaphylactic reaction [None]
